FAERS Safety Report 5477736-7 (Version None)
Quarter: 2007Q4

REPORT INFORMATION
  Report Type: 
  Country: None (occurrence: None)
  Receive Date: 20071002
  Receipt Date: 20071002
  Transmission Date: 20080405
  Serious: Yes (Other)
  Sender: FDA-Public Use
  Company Number: None

PATIENT
  Age: 40 Year
  Sex: Female
  Weight: 46.7205 kg

DRUGS (2)
  1. CHANTIX [Suspect]
     Indication: SMOKING CESSATION THERAPY
     Dosage: 0.5 MG 1X THEN 2X PER DAY PO
     Route: 048
     Dates: start: 20070702, end: 20070708
  2. CHANTIX [Suspect]
     Indication: SMOKING CESSATION THERAPY
     Dosage: 1.0 MG 2X DAY PO
     Route: 048
     Dates: start: 20070709, end: 20070711

REACTIONS (2)
  - HAEMATEMESIS [None]
  - NAUSEA [None]
